FAERS Safety Report 9059903 (Version 1)
Quarter: 2013Q1

REPORT INFORMATION
  Report Type: Spontaneous
  Country: US (occurrence: None)
  Receive Date: 20130206
  Receipt Date: 20130206
  Transmission Date: 20140127
  Serious: Yes (Other)
  Sender: FDA-Public Use
  Company Number: None

PATIENT
  Age: 43 Year
  Sex: Female
  Weight: 135.5 kg

DRUGS (1)
  1. MONTELUKAST [Suspect]
     Indication: CHRONIC SINUSITIS
     Route: 048
     Dates: start: 20121026, end: 20121029

REACTIONS (6)
  - Hypersensitivity [None]
  - Feeling hot [None]
  - Blepharospasm [None]
  - Chest discomfort [None]
  - Nausea [None]
  - Urticaria [None]
